FAERS Safety Report 18929688 (Version 12)
Quarter: 2022Q1

REPORT INFORMATION
  Report Type: Other
  Country: DE (occurrence: None)
  Receive Date: 20210223
  Receipt Date: 20220321
  Transmission Date: 20220423
  Serious: Yes (Hospitalization, Other)
  Sender: FDA-Public Use
  Company Number: DE-ROCHE-2436141

PATIENT
  Age: 28 Year
  Sex: Female

DRUGS (15)
  1. OCREVUS [Suspect]
     Active Substance: OCRELIZUMAB
     Indication: Relapsing-remitting multiple sclerosis
     Route: 042
     Dates: start: 20190903
  2. OCREVUS [Suspect]
     Active Substance: OCRELIZUMAB
     Route: 042
  3. OCREVUS [Suspect]
     Active Substance: OCRELIZUMAB
     Route: 042
     Dates: start: 20201028
  4. PREDNISOLONE [Suspect]
     Active Substance: PREDNISOLONE
     Indication: Infusion related reaction
     Dosage: LAST DOSE OF PREDNISOLON WAS GIVEN ON 28/OCT/2020
     Route: 042
     Dates: start: 20190903
  5. DIMETHINDENE MALEATE [Suspect]
     Active Substance: DIMETHINDENE MALEATE
     Indication: Infusion related reaction
     Dosage: LAST DOSE OF HISTAKUT WAS GIVEN ON 28/OCT/2020
     Route: 042
     Dates: start: 20190903
  6. ACETAMINOPHEN [Suspect]
     Active Substance: ACETAMINOPHEN
     Indication: Infusion related reaction
     Route: 042
     Dates: start: 20190903
  7. PREGABALIN [Concomitant]
     Active Substance: PREGABALIN
  8. LEVOTHYROXINE SODIUM [Concomitant]
     Active Substance: LEVOTHYROXINE SODIUM
  9. LEVOTHYROXINE SODIUM [Concomitant]
     Active Substance: LEVOTHYROXINE SODIUM
  10. BISOPROLOL [Concomitant]
     Active Substance: BISOPROLOL
     Dates: start: 2008
  11. CHOLECALCIFEROL [Concomitant]
     Active Substance: CHOLECALCIFEROL
     Dates: start: 201906
  12. METOPROLOL [Concomitant]
     Active Substance: METOPROLOL
  13. FOLIC ACID [Concomitant]
     Active Substance: FOLIC ACID
  14. HYDROCHLOROTHIAZIDE [Concomitant]
     Active Substance: HYDROCHLOROTHIAZIDE
  15. TILIDINE [Concomitant]
     Active Substance: TILIDINE

REACTIONS (14)
  - Multiple sclerosis relapse [Recovered/Resolved]
  - Haemorrhage in pregnancy [Recovered/Resolved]
  - Abdominal pain [Recovered/Resolved]
  - Weight decreased [Unknown]
  - Diarrhoea [Recovered/Resolved]
  - Hepatic steatosis [Recovered/Resolved]
  - Hepatitis [Recovered/Resolved]
  - Asthenia [Recovered/Resolved]
  - Headache [Recovered/Resolved]
  - Dizziness [Recovered/Resolved]
  - Fatigue [Recovered/Resolved]
  - Throat irritation [Recovered/Resolved]
  - Maternal exposure before pregnancy [Unknown]
  - Gestational diabetes [Recovered/Resolved]

NARRATIVE: CASE EVENT DATE: 20190903
